FAERS Safety Report 16755335 (Version 1)
Quarter: 2019Q3

REPORT INFORMATION
  Report Type: Spontaneous
  Country: US (occurrence: US)
  Receive Date: 20190829
  Receipt Date: 20190829
  Transmission Date: 20191005
  Serious: Yes (Other)
  Sender: FDA-Public Use
  Company Number: US-NOVOPROD-681248

PATIENT
  Age: 65 Year
  Sex: Female

DRUGS (2)
  1. NOVOLOG [Suspect]
     Active Substance: INSULIN ASPART
     Indication: TYPE 1 DIABETES MELLITUS
     Dosage: 0 UNITS BEFORE A MEAL, SLIDING SCALE BASED ON READINGS
     Route: 058
  2. TRESIBA [Suspect]
     Active Substance: INSULIN DEGLUDEC
     Indication: TYPE 1 DIABETES MELLITUS
     Dosage: 20 IU QD( IN THE MORNING)
     Route: 058

REACTIONS (4)
  - Cerebrovascular accident [Unknown]
  - Weight decreased [Unknown]
  - Weight increased [Unknown]
  - Cerebrovascular accident [Unknown]

NARRATIVE: CASE EVENT DATE: 201707
